FAERS Safety Report 19549242 (Version 1)
Quarter: 2021Q3

REPORT INFORMATION
  Report Type: Spontaneous
  Country: US (occurrence: US)
  Receive Date: 20210714
  Receipt Date: 20210714
  Transmission Date: 20211014
  Serious: No
  Sender: FDA-Public Use
  Company Number: US-PFIZER INC-2021685375

PATIENT
  Age: 51 Year
  Sex: Male

DRUGS (4)
  1. TAMOXIFEN [Concomitant]
     Active Substance: TAMOXIFEN
     Dosage: UNK
     Route: 065
  2. ANASTROZOLE. [Concomitant]
     Active Substance: ANASTROZOLE
     Dosage: UNK
     Route: 065
  3. IBRANCE [Suspect]
     Active Substance: PALBOCICLIB
     Indication: BREAST CANCER
     Dosage: 125 MILLIGRAM DAILY/ 21 DAYS ON/7 DAYS OFF
     Route: 048
     Dates: start: 20210322
  4. ELIQUIS [Suspect]
     Active Substance: APIXABAN
     Indication: PULMONARY EMBOLISM
     Dosage: UNK
     Route: 065
     Dates: start: 2021

REACTIONS (6)
  - Productive cough [Unknown]
  - Dry throat [Unknown]
  - Nocturia [Unknown]
  - Mouth ulceration [Recovering/Resolving]
  - Laboratory test abnormal [Unknown]
  - Stress [Unknown]

NARRATIVE: CASE EVENT DATE: 202105
